FAERS Safety Report 8498045-8 (Version None)
Quarter: 2012Q3

REPORT INFORMATION
  Report Type: 
  Country: None (occurrence: None)
  Receive Date: 20120709
  Receipt Date: 20120618
  Transmission Date: 20120928
  Serious: No
  Sender: FDA-Public Use
  Company Number: US-AMGEN-USASP2012037988

PATIENT
  Age: 54 Year
  Sex: Female

DRUGS (1)
  1. ENBREL [Suspect]
     Indication: RHEUMATOID ARTHRITIS
     Dosage: 25 MG, QWK
     Dates: start: 20120124, end: 20120601

REACTIONS (9)
  - OEDEMA PERIPHERAL [None]
  - ARTHRALGIA [None]
  - FORMICATION [None]
  - JOINT SWELLING [None]
  - BLEPHAROSPASM [None]
  - VISION BLURRED [None]
  - NECK PAIN [None]
  - PAIN IN EXTREMITY [None]
  - FATIGUE [None]
